FAERS Safety Report 6059625-2 (Version None)
Quarter: 2009Q1

REPORT INFORMATION
  Report Type: 
  Country: None (occurrence: None)
  Receive Date: 20090128
  Receipt Date: 20090116
  Transmission Date: 20090719
  Serious: Yes (Hospitalization)
  Sender: FDA-Public Use
  Company Number: 230094K09USA

PATIENT
  Age: 68 Year
  Sex: Female

DRUGS (6)
  1. REBIF [Suspect]
     Indication: MULTIPLE SCLEROSIS
     Dosage: 44 MCG, 3 IN 1 WEEKS, SUBCUTANEOUS
     Route: 058
     Dates: start: 20030101
  2. FISH OIL (FISH OIL) [Concomitant]
  3. CYMBALTA [Concomitant]
  4. LYRICA [Concomitant]
  5. TYLENOL ARTHRITIS (PARACETAMOL) [Concomitant]
  6. TOPROL-XL [Concomitant]

REACTIONS (5)
  - ACTIVITIES OF DAILY LIVING IMPAIRED [None]
  - ARTHRITIS [None]
  - BALANCE DISORDER [None]
  - CONDITION AGGRAVATED [None]
  - HEART RATE INCREASED [None]
